FAERS Safety Report 9664574 (Version 2)
Quarter: 2014Q1

REPORT INFORMATION
  Report Type: Spontaneous
  Country: US (occurrence: US)
  Receive Date: 20131101
  Receipt Date: 20140116
  Transmission Date: 20141002
  Serious: No
  Sender: FDA-Public Use
  Company Number: US-TEVA-441641USA

PATIENT
  Age: 24 Year
  Sex: Female
  Weight: 49.49 kg

DRUGS (4)
  1. PARAGARD 380A [Suspect]
     Indication: CONTRACEPTION
     Route: 015
     Dates: start: 20111010, end: 20131025
  2. EFFEXOR [Concomitant]
  3. TRAZODONE [Concomitant]
  4. ADDERALL [Concomitant]

REACTIONS (2)
  - Smear cervix abnormal [Unknown]
  - Cervical dysplasia [Recovering/Resolving]
